FAERS Safety Report 10007404 (Version 3)
Quarter: 2014Q2

REPORT INFORMATION
  Report Type: Spontaneous
  Country: JP (occurrence: JP)
  Receive Date: 20140313
  Receipt Date: 20140414
  Transmission Date: 20141212
  Serious: Yes (Disabling)
  Sender: FDA-Public Use
  Company Number: JP-GLAXOSMITHKLINE-B0975685A

PATIENT
  Age: 63 Year
  Sex: Female

DRUGS (6)
  1. RELENZA [Suspect]
     Indication: INFLUENZA
     Dosage: 10MG TWICE PER DAY
     Route: 055
     Dates: start: 20140228, end: 20140304
  2. CALONAL [Concomitant]
     Indication: PYREXIA
     Route: 048
  3. AZUNOL [Concomitant]
     Indication: OROPHARYNGEAL DISCOMFORT
  4. FLUMETHOLON [Concomitant]
     Route: 031
  5. MUCOSTA [Concomitant]
     Indication: DRY EYE
     Route: 031
  6. PATANOL [Concomitant]
     Route: 031

REACTIONS (2)
  - Ageusia [Unknown]
  - Hyposmia [Unknown]
